FAERS Safety Report 6220854-6 (Version None)
Quarter: 2009Q2

REPORT INFORMATION
  Report Type: 
  Country: None (occurrence: None)
  Receive Date: 20090603
  Receipt Date: 20090523
  Transmission Date: 20091009
  Serious: Yes (Death)
  Sender: FDA-Public Use
  Company Number: WAES 0905USA03840

PATIENT
  Age: 55 Year
  Sex: Female

DRUGS (9)
  1. INJ FOSAPREPITANT DIMEGLUMINE [Suspect]
     Indication: PROPHYLAXIS OF NAUSEA AND VOMITING
     Dosage: 150 MG/1X
     Route: 042
     Dates: start: 20090519, end: 20090519
  2. ONDANSETRON HYDROCHLORIDE [Suspect]
     Indication: PROPHYLAXIS OF NAUSEA AND VOMITING
     Dosage: 50 ML/1X
     Route: 042
     Dates: start: 20090519, end: 20090519
  3. PLACEBO (UNSPECIFIED) [Suspect]
     Indication: PROPHYLAXIS OF NAUSEA AND VOMITING
     Dosage: PO
     Route: 048
     Dates: start: 20090519, end: 20090519
  4. DEXAMETHASONE [Suspect]
     Indication: PROPHYLAXIS OF NAUSEA AND VOMITING
     Dosage: 20 MG DAILY
     Route: 048
     Dates: start: 20090518, end: 20090519
  5. ALBUMIN (HUMAN) [Concomitant]
  6. MANNITOL [Concomitant]
  7. PACLITAXEL [Concomitant]
  8. PANTOPRAZOLE SODIUM [Concomitant]
  9. SODIUM CHLORIDE [Concomitant]

REACTIONS (5)
  - BLOOD PRESSURE DECREASED [None]
  - GENERAL PHYSICAL HEALTH DETERIORATION [None]
  - INTESTINAL OBSTRUCTION [None]
  - OXYGEN SATURATION DECREASED [None]
  - SEPSIS [None]
